FAERS Safety Report 5252061-8 (Version None)
Quarter: 2007Q1

REPORT INFORMATION
  Report Type: 
  Country: None (occurrence: None)
  Receive Date: 20070226
  Receipt Date: 20070209
  Transmission Date: 20070707
  Serious: Yes (Death)
  Sender: FDA-Public Use
  Company Number: VNL_0244_2006

PATIENT
  Age: 63 Year
  Sex: Male

DRUGS (15)
  1. APO-GO SOLUTION FOR INJECTION [Suspect]
     Indication: PARKINSON'S DISEASE
     Dosage: 2 MG/HR INFUSION SC
     Route: 058
     Dates: start: 20060911, end: 20060912
  2. APO-GO SOLUTION FOR INJECTION [Suspect]
     Indication: PARKINSON'S DISEASE
     Dosage: 3 MG/HR INFUSION SC
     Route: 058
     Dates: start: 20060912, end: 20060912
  3. APO-GO SOLUTION FOR INJECTION [Suspect]
     Indication: PARKINSON'S DISEASE
     Dosage: 2 MG/HR INFUSION SC
     Route: 058
     Dates: start: 20060912, end: 20060913
  4. APO-GO SOLUTION FOR INJECTION [Suspect]
     Indication: PARKINSON'S DISEASE
     Dosage: 3 MG/HR INFUSION SC
     Route: 058
     Dates: start: 20060913, end: 20060914
  5. AMANTADINE HCL [Concomitant]
  6. AMITRIPTYLINE HCL [Concomitant]
  7. CIPRALEX [Concomitant]
  8. ASPIRIN [Concomitant]
  9. CLOZAPINE [Concomitant]
  10. PANTOZOL [Concomitant]
  11. MOTILIUM [Concomitant]
  12. MOVICOL [Concomitant]
  13. METOPROLOL SUCCINATE [Concomitant]
  14. KALINOR-BRAUSETABLETTEN [Concomitant]
  15. ZOFRAN [Concomitant]

REACTIONS (12)
  - ASPIRATION [None]
  - AUTONOMIC NERVOUS SYSTEM IMBALANCE [None]
  - CARDIAC FAILURE [None]
  - FAECAL VOMITING [None]
  - GASTROINTESTINAL OBSTRUCTION [None]
  - ILEUS PARALYTIC [None]
  - INJURY ASPHYXIATION [None]
  - INTESTINAL STENOSIS [None]
  - NEOPLASM [None]
  - PULMONARY CONGESTION [None]
  - PULMONARY OEDEMA [None]
  - RESPIRATORY FAILURE [None]
